FAERS Safety Report 11089107 (Version 2)
Quarter: 2015Q2

REPORT INFORMATION
  Report Type: Spontaneous
  Country: PL (occurrence: PL)
  Receive Date: 20150505
  Receipt Date: 20150514
  Transmission Date: 20150821
  Serious: Yes (Hospitalization)
  Sender: FDA-Public Use
  Company Number: PL-ROCHE-1571227

PATIENT
  Age: 16 Year
  Sex: Male

DRUGS (1)
  1. CELLCEPT [Suspect]
     Active Substance: MYCOPHENOLATE MOFETIL\MYCOPHENOLATE MOFETIL HYDROCHLORIDE
     Indication: NEPHROTIC SYNDROME
     Dosage: 2 X 750 MG
     Route: 065

REACTIONS (5)
  - Drug ineffective [Unknown]
  - Nephrotic syndrome [Not Recovered/Not Resolved]
  - Immunosuppressant drug level decreased [Unknown]
  - Proteinuria [Not Recovered/Not Resolved]
  - Oedema [Not Recovered/Not Resolved]
